FAERS Safety Report 7702092-0 (Version None)
Quarter: 2011Q3

REPORT INFORMATION
  Report Type: 
  Country: None (occurrence: None)
  Receive Date: 20110822
  Receipt Date: 20110819
  Transmission Date: 20111222
  Serious: Yes (Death, Hospitalization)
  Sender: FDA-Public Use
  Company Number: US-CEPHALON-2011004187

PATIENT
  Sex: Male
  Weight: 84 kg

DRUGS (12)
  1. HUMULIN N [Concomitant]
  2. TENORMIN [Concomitant]
  3. DECADRON [Concomitant]
  4. GLIPIZIDE [Concomitant]
  5. HYDROCHLOROTHIAZIDE [Concomitant]
  6. ATIVAN [Concomitant]
  7. ALLOPURINOL [Concomitant]
     Dates: start: 20110725
  8. LISINOPRIL [Concomitant]
  9. SYNTHROID [Concomitant]
  10. TYLENOL-500 [Concomitant]
  11. BENDAMUSTINE HCL [Suspect]
     Indication: SMALL CELL LUNG CANCER STAGE UNSPECIFIED
     Route: 041
     Dates: start: 20110801
  12. IRINOTECAN HCL [Suspect]
     Indication: SMALL CELL LUNG CANCER STAGE UNSPECIFIED
     Dates: start: 20110801

REACTIONS (7)
  - DYSPNOEA [None]
  - SEPSIS [None]
  - PYREXIA [None]
  - PANCYTOPENIA [None]
  - RESPIRATORY FAILURE [None]
  - RENAL FAILURE [None]
  - NEUTROPENIA [None]
